FAERS Safety Report 9057772 (Version 1)
Quarter: 2013Q1

REPORT INFORMATION
  Report Type: Spontaneous
  Country: US (occurrence: None)
  Receive Date: 20130204
  Receipt Date: 20130204
  Transmission Date: 20140127
  Serious: Yes (Hospitalization)
  Sender: FDA-Public Use
  Company Number: None

PATIENT
  Sex: Male
  Weight: 71 kg

DRUGS (5)
  1. DOXORUBICIN HYDROCHLORIDE [Suspect]
  2. ETOPOSIDE (VP-16) [Suspect]
  3. PREDNISONE [Suspect]
  4. RITUXIMAB [Suspect]
  5. VINCRISTINE SULFATE [Suspect]

REACTIONS (3)
  - Dehydration [None]
  - Diarrhoea [None]
  - Blood pressure decreased [None]
